FAERS Safety Report 24571012 (Version 3)
Quarter: 2025Q1

REPORT INFORMATION
  Report Type: Report from Study
  Country: GB (occurrence: GB)
  Receive Date: 20241101
  Receipt Date: 20250109
  Transmission Date: 20250408
  Serious: Yes (Hospitalization)
  Sender: ABBVIE
  Company Number: US-ABBVIE-5985451

PATIENT
  Age: 37 Year
  Sex: Female
  Weight: 41 kg

DRUGS (10)
  1. SKYRIZI [Suspect]
     Active Substance: RISANKIZUMAB-RZAA
     Indication: Crohn^s disease
     Dosage: FORM STRENGTH: 360 MILLIGRAM
     Route: 058
     Dates: start: 20240415
  2. CALCIUM CARBONATE\CHOLECALCIFEROL [Concomitant]
     Active Substance: CALCIUM CARBONATE\CHOLECALCIFEROL
     Indication: Osteoporosis
     Route: 050
  3. DOMPERIDONE [Concomitant]
     Active Substance: DOMPERIDONE
     Indication: Gastrointestinal motility disorder
     Route: 050
  4. LANSOPRAZOLE [Concomitant]
     Active Substance: LANSOPRAZOLE
     Indication: Gastrointestinal motility disorder
     Route: 050
  5. PRUCALOPRIDE [Concomitant]
     Active Substance: PRUCALOPRIDE
     Indication: Gastrointestinal motility disorder
     Route: 050
  6. TAPENTADOL [Concomitant]
     Active Substance: TAPENTADOL
     Indication: Gastrointestinal motility disorder
     Dosage: DOSE FORM: LIQUID
     Route: 050
  7. LINACLOTIDE [Concomitant]
     Active Substance: LINACLOTIDE
     Indication: Gastrointestinal motility disorder
     Route: 050
  8. MEDROXYPROGESTERONE [Concomitant]
     Active Substance: MEDROXYPROGESTERONE
     Indication: Osteoporosis
     Route: 050
  9. ESTROGENS [Concomitant]
     Active Substance: ESTROGENS
     Indication: Osteoporosis
     Route: 062
  10. VITAMIN D [Concomitant]
     Active Substance: VITAMIN D NOS
     Indication: Osteoporosis
     Route: 002

REACTIONS (5)
  - Device occlusion [Recovered/Resolved]
  - Localised infection [Recovered/Resolved]
  - Diarrhoea [Recovered/Resolved]
  - Abdominal pain [Recovered/Resolved]
  - Therapeutic response shortened [Recovered/Resolved]

NARRATIVE: CASE EVENT DATE: 20240912
